FAERS Safety Report 8488918-4 (Version None)
Quarter: 2012Q3

REPORT INFORMATION
  Report Type: 
  Country: None (occurrence: None)
  Receive Date: 20120705
  Receipt Date: 20120703
  Transmission Date: 20120928
  Serious: No
  Sender: FDA-Public Use
  Company Number: US-B.I. PHARMACEUTICALS,INC./RIDGEFIELD-2011-BP-14268BP

PATIENT
  Sex: Male

DRUGS (9)
  1. TORSEMIDE [Suspect]
     Indication: PULMONARY OEDEMA
     Route: 048
     Dates: start: 20120501
  2. VITAMIN TAB [Concomitant]
     Indication: HYPERTENSION
  3. TOPROL-XL [Concomitant]
     Indication: ATRIAL FIBRILLATION
  4. DIGOXIN [Concomitant]
     Indication: ATRIAL FIBRILLATION
     Dosage: 125 MCG
     Route: 048
     Dates: start: 20110601
  5. VITAMIN TAB [Concomitant]
     Indication: VITAMIN SUPPLEMENTATION
  6. PRADAXA [Suspect]
     Indication: ATRIAL FIBRILLATION
     Dosage: 300 MG
     Route: 048
     Dates: start: 20101201
  7. TOPROL-XL [Concomitant]
     Indication: HYPERTENSION
     Dosage: 100 MG
     Route: 048
     Dates: start: 20110301
  8. VITAMIN TAB [Concomitant]
     Indication: ATRIAL FIBRILLATION
  9. POTASSIUM CHLORIDE [Suspect]
     Indication: SUPPLEMENTATION THERAPY
     Route: 048
     Dates: start: 20120501

REACTIONS (7)
  - OEDEMA [None]
  - DIARRHOEA [None]
  - COAGULATION TIME PROLONGED [None]
  - BLOOD CHOLESTEROL INCREASED [None]
  - RECTAL HAEMORRHAGE [None]
  - DYSPEPSIA [None]
  - BLOOD POTASSIUM ABNORMAL [None]
